FAERS Safety Report 7769196-8 (Version None)
Quarter: 2011Q3

REPORT INFORMATION
  Report Type: 
  Country: None (occurrence: None)
  Receive Date: 20110922
  Receipt Date: 20110914
  Transmission Date: 20111222
  Serious: Yes (Hospitalization, Other)
  Sender: FDA-Public Use
  Company Number: AU-GENZYME-THYM-1001472

PATIENT
  Sex: Female
  Weight: 60.9 kg

DRUGS (24)
  1. PREDNISOLONE [Concomitant]
     Indication: PROPHYLAXIS AGAINST GRAFT VERSUS HOST DISEASE
     Dosage: 25 MG, QD
     Route: 048
     Dates: start: 20100713, end: 20100720
  2. PREDNISOLONE [Concomitant]
     Dosage: 15 MG, QD
     Route: 065
  3. CYCLOSPORINE [Concomitant]
     Dosage: 50 MG, QD
  4. PREDNISOLONE [Concomitant]
     Dosage: 37.5 MG, QD
     Route: 048
  5. POSACONAZOLE [Concomitant]
     Dosage: 400 MG, BID
     Route: 048
     Dates: start: 20100720
  6. BACTRIM [Concomitant]
     Dosage: 800 MG, BID
     Route: 048
     Dates: start: 20100217
  7. ROXITHROMYCIN [Concomitant]
     Indication: ANTIBIOTIC PROPHYLAXIS
     Route: 065
  8. BACTRIM [Concomitant]
     Indication: ANTIFUNGAL PROPHYLAXIS
     Dosage: 160 MG, BID
     Route: 048
     Dates: start: 20100217
  9. THYMOGLOBULIN [Suspect]
     Dosage: 120 MG, UNK
     Route: 042
     Dates: start: 20100112, end: 20100114
  10. URSODIOL [Concomitant]
     Indication: PROPHYLAXIS
     Dosage: 1000 MG, UNK
  11. CYCLOSPORINE [Concomitant]
     Indication: PROPHYLAXIS AGAINST GRAFT VERSUS HOST DISEASE
     Dosage: 150 MG, BID
     Route: 048
     Dates: start: 20110208
  12. PREDNISOLONE [Concomitant]
     Dosage: 50 MG, QD
     Route: 048
     Dates: start: 20100720
  13. POSACONAZOLE [Concomitant]
     Indication: ANTIFUNGAL PROPHYLAXIS
     Dosage: 200 MG, TID
     Route: 048
  14. CYCLOPHOSPHAMIDE [Concomitant]
     Indication: ACUTE LYMPHOCYTIC LEUKAEMIA
     Dosage: UNK
     Route: 065
  15. PREDNISOLONE [Concomitant]
     Dosage: 10 MG, QD
     Route: 065
  16. ACYCLOVIR [Concomitant]
     Indication: ANTIVIRAL PROPHYLAXIS
     Dosage: 200 MG, TID
     Route: 048
     Dates: start: 20100319
  17. VITAMIN D [Concomitant]
     Indication: PRODUCT USED FOR UNKNOWN INDICATION
     Route: 065
  18. THYMOGLOBULIN [Suspect]
     Indication: BONE MARROW CONDITIONING REGIMEN
     Dosage: 30 MG, UNK
     Route: 042
     Dates: start: 20100112, end: 20100114
  19. ONDANSETRON [Concomitant]
     Indication: NAUSEA
     Dosage: 16 MG, UNK
  20. PANTOPRAZOLE [Concomitant]
     Indication: GASTROOESOPHAGEAL REFLUX DISEASE
     Dosage: 40 MG, UNK
  21. CYCLOSPORINE [Concomitant]
     Dosage: 175 MG, BID
     Route: 048
     Dates: start: 20100720
  22. URSO FALK [Concomitant]
     Indication: PROPHYLAXIS
     Dosage: 250 MG, BID
     Route: 048
     Dates: start: 20100609
  23. ALLOPURINOL [Concomitant]
     Indication: GOUT
     Dosage: 300 MG, UNK
  24. FLUCONAZOLE [Concomitant]
     Indication: ANTIFUNGAL PROPHYLAXIS
     Dosage: 200 MG, BID
     Route: 065
     Dates: start: 20100202, end: 20100720

REACTIONS (8)
  - PLEURAL EFFUSION [None]
  - SKIN LESION [None]
  - VITAMIN D INCREASED [None]
  - STAPHYLOCOCCAL INFECTION [None]
  - HYPOGAMMAGLOBULINAEMIA [None]
  - ASPERGILLUS TEST POSITIVE [None]
  - GRAFT VERSUS HOST DISEASE [None]
  - COUGH [None]
